FAERS Safety Report 21065786 (Version 1)
Quarter: 2022Q3

REPORT INFORMATION
  Report Type: Spontaneous
  Country: AU (occurrence: AU)
  Receive Date: 20220711
  Receipt Date: 20220711
  Transmission Date: 20221027
  Serious: Yes (Other)
  Sender: FDA-Public Use
  Company Number: AU-ANIPHARMA-2022-AU-000171

PATIENT
  Age: 65 Year
  Sex: Female

DRUGS (1)
  1. ARIMIDEX [Suspect]
     Active Substance: ANASTROZOLE
     Indication: Endometrial cancer
     Route: 048

REACTIONS (7)
  - Malignant neoplasm progression [Unknown]
  - Arterial occlusive disease [Unknown]
  - Gangrene [Unknown]
  - Deep vein thrombosis [Unknown]
  - Chronic kidney disease [Unknown]
  - Neuropathy peripheral [Unknown]
  - Product use in unapproved indication [Unknown]

NARRATIVE: CASE EVENT DATE: 20220601
